FAERS Safety Report 4584443-1 (Version None)
Quarter: 2005Q1

REPORT INFORMATION
  Report Type: 
  Country: None (occurrence: None)
  Receive Date: 20050125
  Receipt Date: 20041109
  Transmission Date: 20050727
  Serious: No
  Sender: FDA-Public Use
  Company Number: USA041183646

PATIENT
  Age: 74 Year
  Sex: Female
  Weight: 56 kg

DRUGS (6)
  1. FORTEO [Suspect]
     Indication: SPINAL FRACTURE
     Dosage: 20 UG/1 DAY
     Dates: start: 20041105
  2. BLOOD PRESSURE MEDICATION [Concomitant]
  3. DIURETIC [Concomitant]
  4. THYROID TAB [Concomitant]
  5. IRON [Concomitant]
  6. CALCIUM GLUCONATE [Concomitant]

REACTIONS (1)
  - FEELING COLD [None]
